FAERS Safety Report 18775189 (Version 2)
Quarter: 2022Q1

REPORT INFORMATION
  Report Type: Other
  Country: DE (occurrence: DE)
  Receive Date: 20210122
  Receipt Date: 20220208
  Transmission Date: 20220423
  Serious: Yes (Hospitalization, Other)
  Sender: FDA-Public Use
  Company Number: DE-MACLEODS PHARMACEUTICALS US LTD-MAC2021029828

PATIENT

DRUGS (4)
  1. ESCITALOPRAM [Suspect]
     Active Substance: ESCITALOPRAM OXALATE
     Indication: Tension headache
     Dosage: 5 MILLIGRAM, QD 5 [MG/D ] 0. - 4.3. GESTATIONAL WEEK
     Route: 048
     Dates: start: 20190615, end: 20190716
  2. GABAPENTIN [Suspect]
     Active Substance: GABAPENTIN
     Indication: Tension headache
     Dosage: UNK, BID, (900 [MG/D (300-0-600 MG) ]) 0. - 4.3. GESTATIONAL WEEK
     Route: 048
     Dates: start: 20190615, end: 20190716
  3. PROGESTERONE [Concomitant]
     Active Substance: PROGESTERONE
     Indication: Haemorrhage in pregnancy
     Dosage: 100 MILLIGRAM, BID (200 [MG/D (100-0-100) ]) 6.3. - 6.5. GESTATIONAL WEEK START ON 30-JUL-2019
     Route: 067
     Dates: start: 20190730, end: 20190801
  4. EUTHYROX [Concomitant]
     Active Substance: LEVOTHYROXINE SODIUM
     Indication: Thyroid hormone replacement therapy
     Dosage: 150 [NG/D (BIS 112 NG/D) ] 0. - 12.3. GESTATIONAL WEEK
     Route: 048
     Dates: start: 20190615, end: 20190910

REACTIONS (6)
  - Retroplacental haematoma [Unknown]
  - Haemorrhage in pregnancy [Recovered/Resolved]
  - Hydrops foetalis [Unknown]
  - Oligohydramnios [Recovered/Resolved]
  - Exposure during pregnancy [Unknown]
  - Off label use [Unknown]
